FAERS Safety Report 6346447-8 (Version None)
Quarter: 2009Q3

REPORT INFORMATION
  Report Type: 
  Country: None (occurrence: None)
  Receive Date: 20090909
  Receipt Date: 20090831
  Transmission Date: 20100115
  Serious: Yes (Disabling)
  Sender: FDA-Public Use
  Company Number: DE-GENENTECH-289692

PATIENT
  Sex: Female

DRUGS (1)
  1. TRASTUZUMAB [Suspect]
     Indication: BREAST CANCER
     Dosage: UNK
     Route: 042
     Dates: start: 20080201

REACTIONS (5)
  - ENAMEL ANOMALY [None]
  - TEETH BRITTLE [None]
  - TOOTH DISCOLOURATION [None]
  - TOOTH FRACTURE [None]
  - TOOTH HYPOPLASIA [None]
